FAERS Safety Report 6254189-2 (Version None)
Quarter: 2009Q2

REPORT INFORMATION
  Report Type: 
  Country: None (occurrence: None)
  Receive Date: 20090630
  Receipt Date: 20081015
  Transmission Date: 20091009
  Serious: Yes (Hospitalization)
  Sender: FDA-Public Use
  Company Number: WAES 0810USA02716

PATIENT
  Age: 49 Year
  Sex: Female

DRUGS (3)
  1. HYZAAR [Suspect]
     Indication: HYPERTENSION
     Dosage: 50/12.5MG/DAILY/PO  ; 100/12.5 MG /DAILY/PO
     Route: 048
     Dates: start: 20060101, end: 20080801
  2. HYZAAR [Suspect]
     Indication: HYPERTENSION
     Dosage: 50/12.5MG/DAILY/PO  ; 100/12.5 MG /DAILY/PO
     Route: 048
     Dates: start: 20080801, end: 20080909
  3. PAXIL [Concomitant]

REACTIONS (2)
  - ABDOMINAL PAIN UPPER [None]
  - PANCREATITIS [None]
